FAERS Safety Report 13174887 (Version 1)
Quarter: 2017Q1

REPORT INFORMATION
  Report Type: Spontaneous
  Country: US (occurrence: US)
  Receive Date: 20170201
  Receipt Date: 20170201
  Transmission Date: 20170428
  Serious: Yes (Other)
  Sender: FDA-Public Use
  Company Number: US-ABBVIE-16K-163-1593566-00

PATIENT
  Sex: Male

DRUGS (1)
  1. HUMIRA [Suspect]
     Active Substance: ADALIMUMAB
     Indication: PRODUCT USED FOR UNKNOWN INDICATION
     Route: 058

REACTIONS (15)
  - Impaired healing [Unknown]
  - Malnutrition [Unknown]
  - Irritability [Unknown]
  - Systemic lupus erythematosus [Unknown]
  - Sleep apnoea syndrome [Not Recovered/Not Resolved]
  - Wisdom teeth removal [Unknown]
  - Trigeminal neuralgia [Unknown]
  - Gallbladder disorder [Unknown]
  - Obesity [Unknown]
  - Immune system disorder [Unknown]
  - Inflammation [Unknown]
  - Diabetes mellitus [Unknown]
  - Drug hypersensitivity [Unknown]
  - Cholecystectomy [Unknown]
  - Pain [Unknown]

NARRATIVE: CASE EVENT DATE: 201604
